FAERS Safety Report 4851678-X (Version None)
Quarter: 2005Q4

REPORT INFORMATION
  Report Type: 
  Country: None (occurrence: None)
  Receive Date: 20051209
  Receipt Date: 20051209
  Transmission Date: 20060501
  Serious: Yes (Other)
  Sender: FDA-Public Use
  Company Number: None

PATIENT
  Sex: Female
  Weight: 65.7716 kg

DRUGS (1)
  1. METOPROLOL TARTRATE [Suspect]
     Indication: HYPERTENSION
     Dosage: 1 BID PO
     Route: 048
     Dates: start: 20051107, end: 20051206

REACTIONS (4)
  - DIZZINESS [None]
  - HEADACHE [None]
  - PALPITATIONS [None]
  - SOMNOLENCE [None]
